FAERS Safety Report 5387917-9 (Version None)
Quarter: 2007Q3

REPORT INFORMATION
  Report Type: 
  Country: None (occurrence: None)
  Receive Date: 20070716
  Receipt Date: 20060907
  Transmission Date: 20080115
  Serious: No
  Sender: FDA-Public Use
  Company Number: A0619185A

PATIENT
  Age: 35 Year
  Sex: Male

DRUGS (1)
  1. NICORETTE [Suspect]
     Dates: start: 20060906, end: 20060906

REACTIONS (1)
  - THROAT TIGHTNESS [None]
